FAERS Safety Report 14227407 (Version 3)
Quarter: 2018Q2

REPORT INFORMATION
  Report Type: Spontaneous
  Country: US (occurrence: US)
  Receive Date: 20171127
  Receipt Date: 20180613
  Transmission Date: 20180711
  Serious: Yes (Hospitalization, Disabling, Other)
  Sender: FDA-Public Use
  Company Number: US-009507513-1711USA009630

PATIENT
  Sex: Female
  Weight: 99.77 kg

DRUGS (2)
  1. NUVARING [Suspect]
     Active Substance: ETHINYL ESTRADIOL\ETONOGESTREL
     Indication: CONTRACEPTION
     Dosage: 0.12-0.015 MG/24 HR; 3 WEEKS IN/ONE WEEK FREE
     Route: 067
     Dates: start: 20150925, end: 20160120
  2. ALBUTEROL. [Concomitant]
     Active Substance: ALBUTEROL
     Indication: ASTHMA
     Route: 065

REACTIONS (14)
  - Swelling [Unknown]
  - Vulvovaginal candidiasis [Unknown]
  - Migraine [Unknown]
  - Dysmenorrhoea [Unknown]
  - Pulmonary embolism [Recovered/Resolved]
  - Asthma [Unknown]
  - Genital herpes simplex [Unknown]
  - Gastrooesophageal reflux disease [Unknown]
  - Pica [Unknown]
  - Bronchial hyperreactivity [Unknown]
  - Pleuritic pain [Unknown]
  - Smear cervix abnormal [Unknown]
  - Joint instability [Unknown]
  - Cough [Unknown]

NARRATIVE: CASE EVENT DATE: 2015
